FAERS Safety Report 21522103 (Version 1)
Quarter: 2022Q4

REPORT INFORMATION
  Report Type: Spontaneous
  Country: US (occurrence: None)
  Receive Date: 20221027
  Receipt Date: 20221027
  Transmission Date: 20230113
  Serious: Yes (Life-Threatening, Other)
  Sender: FDA-Public Use
  Company Number: None

PATIENT
  Age: 66 Year
  Sex: Male
  Weight: 102 kg

DRUGS (1)
  1. PROCHLORPERAZINE [Suspect]
     Active Substance: PROCHLORPERAZINE
     Dosage: FREQUENCY : ONCE;?
     Route: 042
     Dates: start: 20220912, end: 20220912

REACTIONS (2)
  - Electrocardiogram QT prolonged [None]
  - Therapy cessation [None]

NARRATIVE: CASE EVENT DATE: 20220912
